FAERS Safety Report 12899281 (Version 1)
Quarter: 2016Q4

REPORT INFORMATION
  Report Type: Spontaneous
  Country: FR (occurrence: FR)
  Receive Date: 20161101
  Receipt Date: 20161101
  Transmission Date: 20170207
  Serious: Yes (Hospitalization)
  Sender: FDA-Public Use
  Company Number: FR-ROCHE-1848350

PATIENT
  Age: 67 Year
  Sex: Female

DRUGS (14)
  1. CORTANCYL [Concomitant]
     Active Substance: PREDNISONE
  2. ATARAX [Concomitant]
     Active Substance: HYDROXYZINE\HYDROXYZINE HYDROCHLORIDE
  3. COTELLIC [Suspect]
     Active Substance: COBIMETINIB
     Route: 048
     Dates: start: 20160603, end: 20160818
  4. KEPPRA [Concomitant]
     Active Substance: LEVETIRACETAM
  5. ZELBORAF [Suspect]
     Active Substance: VEMURAFENIB
     Indication: METASTATIC MALIGNANT MELANOMA
     Route: 048
     Dates: start: 20160506, end: 20160603
  6. LEVOTHYROX [Concomitant]
     Active Substance: LEVOTHYROXINE
  7. DOLIPRANE [Concomitant]
     Active Substance: ACETAMINOPHEN
  8. PRINCI-B FORT [Concomitant]
     Active Substance: CYANOCOBALAMIN\PYRIDOXINE\THIAMINE
  9. ZELBORAF [Suspect]
     Active Substance: VEMURAFENIB
     Route: 048
     Dates: start: 20160603, end: 20160818
  10. GANFORT [Concomitant]
     Active Substance: BIMATOPROST\TIMOLOL
  11. IMOVANE [Concomitant]
     Active Substance: ZOPICLONE
  12. MIANSERINE [Concomitant]
     Active Substance: MIANSERIN HYDROCHLORIDE
  13. COTELLIC [Suspect]
     Active Substance: COBIMETINIB
     Indication: METASTATIC MALIGNANT MELANOMA
     Route: 048
     Dates: start: 20160506, end: 20160603
  14. PANTOPRAZOLE [Concomitant]
     Active Substance: PANTOPRAZOLE SODIUM

REACTIONS (1)
  - Interstitial lung disease [Recovering/Resolving]

NARRATIVE: CASE EVENT DATE: 201608
